FAERS Safety Report 6668802-9 (Version None)
Quarter: 2010Q1

REPORT INFORMATION
  Report Type: 
  Country: None (occurrence: None)
  Receive Date: 20100329
  Receipt Date: 20100315
  Transmission Date: 20100710
  Serious: Yes (Other)
  Sender: FDA-Public Use
  Company Number: GAM-056-10-AU

PATIENT
  Age: 74 Year
  Sex: Male

DRUGS (1)
  1. OCTAGAM [Suspect]
     Indication: CHRONIC INFLAMMATORY DEMYELINATING POLYRADICULONEUROPATHY
     Dosage: I.V.
     Route: 042
     Dates: start: 20080101, end: 20080101

REACTIONS (2)
  - CEREBELLAR INFARCTION [None]
  - HYPERVISCOSITY SYNDROME [None]
